FAERS Safety Report 10672553 (Version 2)
Quarter: 2014Q4

REPORT INFORMATION
  Report Type: Spontaneous
  Country: TR (occurrence: TR)
  Receive Date: 20141223
  Receipt Date: 20141230
  Transmission Date: 20150529
  Serious: Yes (Other)
  Sender: FDA-Public Use
  Company Number: PHHY2014TR164523

PATIENT
  Age: 7 Year
  Sex: Female
  Weight: 19 kg

DRUGS (2)
  1. OMNITROPE [Suspect]
     Active Substance: SOMATROPIN
     Dosage: 0.6 MG, (3 DAYS OF WEEK); EVENING AT AROUND 21:30
     Route: 058
  2. OMNITROPE [Suspect]
     Active Substance: SOMATROPIN
     Indication: GROWTH HORMONE DEFICIENCY
     Dosage: 0.7 MG, QD (FOR 4 DAYS OF WEEK), EVENING AT AROUND 21:30
     Route: 058
     Dates: start: 20141117

REACTIONS (3)
  - Abnormal faeces [Not Recovered/Not Resolved]
  - Encopresis [Not Recovered/Not Resolved]
  - Faecal incontinence [Not Recovered/Not Resolved]

NARRATIVE: CASE EVENT DATE: 20141117
